FAERS Safety Report 5010203-3 (Version None)
Quarter: 2006Q2

REPORT INFORMATION
  Report Type: 
  Country: None (occurrence: None)
  Receive Date: 20060524
  Receipt Date: 20060517
  Transmission Date: 20061013
  Serious: Yes (Hospitalization, Other)
  Sender: FDA-Public Use
  Company Number: DE-ABBOTT-06P-062-0333361-00

PATIENT
  Sex: Female
  Weight: 85 kg

DRUGS (1)
  1. ZEMPLAR [Suspect]
     Indication: HYPERPARATHYROIDISM SECONDARY
     Route: 042
     Dates: start: 20050829, end: 20060109

REACTIONS (2)
  - FALL [None]
  - FEMORAL NECK FRACTURE [None]
